FAERS Safety Report 15237613 (Version 1)
Quarter: 2018Q3

REPORT INFORMATION
  Report Type: Spontaneous
  Country: DE (occurrence: DE)
  Receive Date: 20180803
  Receipt Date: 20180803
  Transmission Date: 20181010
  Serious: Yes (Other)
  Sender: FDA-Public Use
  Company Number: DE-ACTELION-A-CH2018-176540

PATIENT
  Age: 16 Year
  Sex: Female

DRUGS (1)
  1. ZAVESCA [Suspect]
     Active Substance: MIGLUSTAT
     Indication: NIEMANN-PICK DISEASE
     Route: 048

REACTIONS (6)
  - Condition aggravated [Unknown]
  - Nausea [Unknown]
  - Niemann-Pick disease [Unknown]
  - Gastrostomy [Unknown]
  - Diarrhoea [Unknown]
  - Epilepsy [Unknown]
